FAERS Safety Report 7728810-3 (Version None)
Quarter: 2011Q3

REPORT INFORMATION
  Report Type: 
  Country: None (occurrence: None)
  Receive Date: 20110906
  Receipt Date: 20110209
  Transmission Date: 20111222
  Serious: No
  Sender: FDA-Public Use
  Company Number: US-BAYER-2011-014528

PATIENT
  Age: 25 Year
  Sex: Female

DRUGS (2)
  1. MIRENA [Suspect]
     Indication: CONTRACEPTION
     Dosage: UNK
     Route: 015
     Dates: start: 20100603, end: 20110207
  2. MIRENA [Suspect]
     Indication: MENORRHAGIA

REACTIONS (4)
  - PAIN [None]
  - DEVICE EXPULSION [None]
  - HAEMORRHAGE [None]
  - DEVICE DISLOCATION [None]
